FAERS Safety Report 23429781 (Version 2)
Quarter: 2024Q1

REPORT INFORMATION
  Report Type: Spontaneous
  Country: AU (occurrence: AU)
  Receive Date: 20240122
  Receipt Date: 20240131
  Transmission Date: 20240409
  Serious: Yes (Hospitalization, Other)
  Sender: FDA-Public Use
  Company Number: AU-Eisai-EC-2024-157426

PATIENT
  Age: 49 Year
  Sex: Male

DRUGS (9)
  1. LENVATINIB [Suspect]
     Active Substance: LENVATINIB
     Indication: Renal cell carcinoma
     Route: 048
     Dates: start: 20180124
  2. EVEROLIMUS [Suspect]
     Active Substance: EVEROLIMUS
     Indication: Renal cell carcinoma
     Route: 048
     Dates: start: 20180124, end: 20180128
  3. EVEROLIMUS [Suspect]
     Active Substance: EVEROLIMUS
     Route: 048
     Dates: start: 2018, end: 2018
  4. ATACAND [Concomitant]
     Active Substance: CANDESARTAN CILEXETIL
  5. ENOXAPARIN SODIUM [Concomitant]
     Active Substance: ENOXAPARIN SODIUM
  6. OXYCODONE HYDROCHLORIDE [Concomitant]
     Active Substance: OXYCODONE HYDROCHLORIDE
  7. CODEINE [Concomitant]
     Active Substance: CODEINE
  8. ALLOPURINOL [Concomitant]
     Active Substance: ALLOPURINOL
  9. PREGABALIN [Concomitant]
     Active Substance: PREGABALIN

REACTIONS (10)
  - Hypoxia [Unknown]
  - Pleural effusion [Recovered/Resolved]
  - Blood pressure increased [Unknown]
  - Dyspnoea [Recovered/Resolved]
  - Hypoalbuminaemia [Unknown]
  - Anaemia [Unknown]
  - Hypervolaemia [Unknown]
  - Skin toxicity [Unknown]
  - Pulmonary congestion [Unknown]
  - Oxygen saturation abnormal [Unknown]

NARRATIVE: CASE EVENT DATE: 20180101
